FAERS Safety Report 4950536-X (Version None)
Quarter: 2006Q1

REPORT INFORMATION
  Report Type: 
  Country: None (occurrence: None)
  Receive Date: 20060127
  Receipt Date: 20050607
  Transmission Date: 20060701
  Serious: Yes (Other)
  Sender: FDA-Public Use
  Company Number: 05-06-1018

PATIENT
  Age: 52 Year
  Sex: Female

DRUGS (4)
  1. CLOZAPINE [Suspect]
     Indication: SCHIZOPHRENIA, PARANOID TYPE
     Dosage: 700MG QD, ORAL
     Route: 048
     Dates: start: 20021203, end: 20050607
  2. SEROQUEL [Concomitant]
  3. LIPITOR [Concomitant]
  4. VASOTEC [Concomitant]

REACTIONS (2)
  - GRANULOCYTOPENIA [None]
  - LEUKOPENIA [None]
